FAERS Safety Report 4300361-8 (Version None)
Quarter: 2004Q1

REPORT INFORMATION
  Report Type: 
  Country: None (occurrence: None)
  Receive Date: 20040220
  Receipt Date: 20040217
  Transmission Date: 20041129
  Serious: Yes (Hospitalization)
  Sender: FDA-Public Use
  Company Number: US-GLAXOSMITHKLINE-A0498394A

PATIENT
  Age: 57 Year
  Sex: Female

DRUGS (9)
  1. MELPHALAN [Suspect]
     Indication: MULTIPLE MYELOMA
     Route: 042
     Dates: start: 20010912, end: 20020912
  2. THALIDOMIDE [Suspect]
     Indication: MULTIPLE MYELOMA
     Dosage: 200MG PER DAY
     Route: 048
     Dates: start: 20010604
  3. VASOTEC [Concomitant]
     Indication: HYPERTENSION
     Dosage: 5MG PER DAY
     Route: 048
  4. ZANTAC [Concomitant]
     Indication: DYSPEPSIA
     Dosage: 150MG TWICE PER DAY
     Route: 048
  5. PLAQUENIL [Concomitant]
     Indication: RHEUMATOID ARTHRITIS
     Dosage: 200MG TWICE PER DAY
     Route: 048
  6. FAMVIR [Concomitant]
     Indication: HERPES VIRUS INFECTION
     Dosage: 250MG TWICE PER DAY
     Route: 048
  7. COUMADIN [Concomitant]
     Indication: HYPERCOAGULATION
     Dosage: 1MG PER DAY
     Route: 048
  8. CLIMARA [Concomitant]
     Indication: BLOOD OESTROGEN
  9. DEXAMETHASONE [Concomitant]

REACTIONS (2)
  - MENINGITIS PNEUMOCOCCAL [None]
  - PYREXIA [None]
